FAERS Safety Report 14493020 (Version 3)
Quarter: 2018Q3

REPORT INFORMATION
  Report Type: Spontaneous
  Country: IT (occurrence: IT)
  Receive Date: 20180206
  Receipt Date: 20180703
  Transmission Date: 20181010
  Serious: Yes (Hospitalization)
  Sender: FDA-Public Use
  Company Number: IT-TEVA-2018-IT-852555

PATIENT
  Age: 60 Year
  Sex: Female
  Weight: 80 kg

DRUGS (6)
  1. CYRAMZA 10 MG/ML CONCENTRATE FOR SOLUTION FOR INFUSION [Concomitant]
     Indication: GASTRIC CANCER
     Route: 042
     Dates: start: 20171018
  2. EUTIROX 125 MICROGRAMMI COMPRESSE [Concomitant]
     Indication: AUTOIMMUNE THYROIDITIS
     Route: 048
  3. PANTOPRAZOLO MYLAN GENERICS 40 MG COMPRESSE GASTRORESISTENTI [Concomitant]
     Indication: PROPHYLAXIS AGAINST GASTROINTESTINAL ULCER
     Route: 048
  4. BLOPRESS 16 MG COMPRESSE [Concomitant]
     Indication: HYPERTENSION
     Route: 048
  5. PACLITAXEL TEVA 6 MG/ML [Suspect]
     Active Substance: PACLITAXEL
     Indication: GASTRIC CANCER
     Route: 042
     Dates: start: 20171018
  6. BISOPROLOLO MYLAN GENERICS 5 MG COMPRESSE [Concomitant]
     Indication: HYPERTENSION
     Route: 048

REACTIONS (4)
  - Pyrexia [Recovered/Resolved]
  - Neutropenia [Recovered/Resolved]
  - C-reactive protein increased [Recovered/Resolved]
  - Leukopenia [Recovered/Resolved]

NARRATIVE: CASE EVENT DATE: 20171124
